FAERS Safety Report 4577123-X (Version None)
Quarter: 2005Q1

REPORT INFORMATION
  Report Type: 
  Country: None (occurrence: None)
  Receive Date: 20050208
  Receipt Date: 20050126
  Transmission Date: 20050727
  Serious: Yes (Other)
  Sender: FDA-Public Use
  Company Number: 2004097796

PATIENT
  Age: 72 Year
  Sex: Female
  Weight: 79.3795 kg

DRUGS (6)
  1. BEXTRA [Suspect]
     Indication: ARTHRALGIA
     Dosage: 10 MG (10 MG, 1 IN 1 D), ORAL
     Route: 048
     Dates: start: 20040216
  2. BEXTRA [Suspect]
     Indication: OSTEOARTHRITIS
     Dosage: 10 MG (10 MG, 1 IN 1 D), ORAL
     Route: 048
     Dates: start: 20040216
  3. PAXIL [Concomitant]
  4. FOLIC ACID [Concomitant]
  5. CLONAZEPAM [Concomitant]
  6. ASACOL [Concomitant]

REACTIONS (3)
  - BREAST CANCER [None]
  - KNEE ARTHROPLASTY [None]
  - SHOULDER ARTHROPLASTY [None]
